FAERS Safety Report 15973635 (Version 1)
Quarter: 2019Q1

REPORT INFORMATION
  Report Type: Report from Study
  Country: IE (occurrence: IE)
  Receive Date: 20190216
  Receipt Date: 20190216
  Transmission Date: 20190418
  Serious: Yes (Hospitalization, Other)
  Sender: FDA-Public Use
  Company Number: IE-AMGEN-IRLSL2019023084

PATIENT
  Age: 66 Year
  Sex: Female

DRUGS (11)
  1. NEULASTA [Suspect]
     Active Substance: PEGFILGRASTIM
     Indication: PRODUCT USED FOR UNKNOWN INDICATION
     Dosage: 6 MG, AS PER PRESCRIPTION
     Route: 058
  2. SALOFALK [Concomitant]
     Active Substance: MESALAMINE
     Dosage: 3 G, QD
     Route: 050
  3. MOMETASONE [Concomitant]
     Active Substance: MOMETASONE
     Dosage: 50 MUG, UNK
     Route: 050
  4. TIOTROPIUM [Concomitant]
     Active Substance: TIOTROPIUM
     Dosage: 10 MUG, QD
     Route: 050
  5. LOSARTAN POTASSIUM. [Concomitant]
     Active Substance: LOSARTAN POTASSIUM
     Dosage: 50 MG, QD
     Route: 050
  6. LANSOPRAZOLE. [Concomitant]
     Active Substance: LANSOPRAZOLE
     Dosage: 30 MG, QD
     Route: 050
  7. PROPRANOLOL [Concomitant]
     Active Substance: PROPRANOLOL HYDROCHLORIDE
     Dosage: 160 MG, QD
     Route: 050
  8. AMLODIPINE [Concomitant]
     Active Substance: AMLODIPINE BESYLATE
     Dosage: 5 MG, QD
     Route: 050
  9. FLUTICASONE. [Concomitant]
     Active Substance: FLUTICASONE
     Dosage: 25 MUG, BID (INHALER)
     Route: 050
  10. EMEND [Concomitant]
     Active Substance: APREPITANT
     Dosage: 125 MG, PER CHEMO REGIM
     Route: 050
  11. DEXAMETHASONE. [Concomitant]
     Active Substance: DEXAMETHASONE
     Dosage: 8 MG, PER CHEMO REGIM
     Route: 050

REACTIONS (3)
  - Lower respiratory tract infection [Recovered/Resolved]
  - Bone pain [Unknown]
  - Myalgia [Unknown]

NARRATIVE: CASE EVENT DATE: 20190210
